FAERS Safety Report 25928450 (Version 1)
Quarter: 2025Q4

REPORT INFORMATION
  Report Type: Spontaneous
  Country: EU (occurrence: None)
  Receive Date: 20251016
  Receipt Date: 20251016
  Transmission Date: 20260117
  Serious: Yes (Other)
  Sender: ENDO
  Company Number: EU-ENDO USA, INC.-2025-001883

PATIENT
  Age: 46 Year
  Sex: Male

DRUGS (1)
  1. AVEED [Suspect]
     Active Substance: TESTOSTERONE UNDECANOATE
     Indication: Performance enhancing product use
     Dosage: 1000 MILLIGRAM, ONCE EVERY 6WKS
     Route: 065

REACTIONS (3)
  - Toxic cardiomyopathy [Unknown]
  - Sinus bradycardia [Unknown]
  - Off label use [Unknown]
